FAERS Safety Report 20957224 (Version 4)
Quarter: 2022Q3

REPORT INFORMATION
  Report Type: Spontaneous
  Country: DE (occurrence: DE)
  Receive Date: 20220614
  Receipt Date: 20220810
  Transmission Date: 20221027
  Serious: Yes (Hospitalization, Other)
  Sender: FDA-Public Use
  Company Number: DE-SA-SAC20220614000345

PATIENT
  Age: 42 Year
  Sex: Female
  Weight: 50 kg

DRUGS (5)
  1. DUPIXENT [Suspect]
     Active Substance: DUPILUMAB
     Indication: Dermatitis atopic
     Dosage: 600 MG, 1X
     Route: 058
     Dates: start: 20220412, end: 20220412
  2. DUPIXENT [Suspect]
     Active Substance: DUPILUMAB
     Indication: Dermatitis atopic
     Dosage: 300 MG, QOW
     Dates: start: 20220426
  3. CLOBETASOL [Concomitant]
     Active Substance: CLOBETASOL
  4. LORATADINE [Concomitant]
     Active Substance: LORATADINE
     Indication: Pruritus
  5. CETIRIZINE [Concomitant]
     Active Substance: CETIRIZINE HYDROCHLORIDE
     Indication: Pruritus
     Dosage: 10 MG
     Route: 048

REACTIONS (8)
  - Autoimmune hepatitis [Unknown]
  - Hepatitis acute [Unknown]
  - Toxicity to various agents [Unknown]
  - Hepatotoxicity [Unknown]
  - Eosinophilia [Unknown]
  - Transaminases increased [Unknown]
  - Eosinophil count decreased [Recovered/Resolved]
  - Unintentional use for unapproved indication [Unknown]

NARRATIVE: CASE EVENT DATE: 20220101
